FAERS Safety Report 21239705 (Version 12)
Quarter: 2022Q4

REPORT INFORMATION
  Report Type: Report from Study
  Country: TR (occurrence: None)
  Receive Date: 20220822
  Receipt Date: 20221021
  Transmission Date: 20230112
  Serious: Yes (Death, Life-Threatening, Hospitalization)
  Sender: FDA-Public Use
  Company Number: TR-ROCHE-3076236

PATIENT
  Age: 54 Year
  Sex: Male
  Weight: 110 kg

DRUGS (47)
  1. ATEZOLIZUMAB [Suspect]
     Active Substance: ATEZOLIZUMAB
     Indication: Malignant neoplasm of unknown primary site
     Dosage: ON 08/MAR/2022 LAST DOSE OF DRUG (1200MG) PRIOR TO AE
     Route: 041
     Dates: start: 20220126
  2. CARBOPLATIN [Suspect]
     Active Substance: CARBOPLATIN
     Indication: Malignant neoplasm of unknown primary site
     Dosage: CARBOPLATIN WILL BE ADMINISTERED AT THE AREA UNDER THE CURVE (AUC)?ON 17/DEC/2021 LAST DOSE OF STUDY
     Route: 042
     Dates: start: 20211105
  3. CISPLATIN [Suspect]
     Active Substance: CISPLATIN
     Indication: Malignant neoplasm of unknown primary site
     Dosage: 60-75MG/M2?ON 08/MAR/2022 LAST DOSE OF DRUG(120) MG PRIOR TO AE
     Route: 042
     Dates: start: 20220126
  4. GEMCITABINE [Suspect]
     Active Substance: GEMCITABINE
     Indication: Malignant neoplasm of unknown primary site
     Dosage: ON 15/MAR/2022 LAST DOSE OF DRUG (2000 MG) PRIOR TO AE
     Route: 042
     Dates: start: 20220126
  5. PACLITAXEL [Suspect]
     Active Substance: PACLITAXEL
     Indication: Malignant neoplasm of unknown primary site
     Dosage: ON 17/DEC/2021 LAST DOSE OF STUDY DRUG (300 MG) PRIOR TO AE
     Route: 042
     Dates: start: 20211105
  6. GRANISETRON [Concomitant]
     Active Substance: GRANISETRON
     Indication: Prophylaxis
     Route: 042
     Dates: start: 20211105, end: 20211105
  7. GRANISETRON [Concomitant]
     Active Substance: GRANISETRON
     Route: 042
     Dates: start: 20220216, end: 20220216
  8. GRANISETRON [Concomitant]
     Active Substance: GRANISETRON
     Route: 042
     Dates: start: 20220308, end: 20220308
  9. GRANISETRON [Concomitant]
     Active Substance: GRANISETRON
     Route: 042
     Dates: start: 20211217, end: 20211217
  10. GRANISETRON [Concomitant]
     Active Substance: GRANISETRON
     Route: 042
     Dates: start: 20211126, end: 20211126
  11. GRANISETRON [Concomitant]
     Active Substance: GRANISETRON
     Route: 042
     Dates: start: 20220126, end: 20220126
  12. DEKSAMETAZON [Concomitant]
     Indication: Prophylaxis
     Route: 042
     Dates: start: 20211005, end: 20211005
  13. DEKSAMETAZON [Concomitant]
     Route: 040
     Dates: start: 20211126, end: 20211126
  14. DEKSAMETAZON [Concomitant]
     Route: 042
     Dates: start: 20220308, end: 20220308
  15. DEKSAMETAZON [Concomitant]
     Route: 042
     Dates: start: 20211217, end: 20211217
  16. LANSOPRAZOLE [Concomitant]
     Active Substance: LANSOPRAZOLE
     Indication: Prophylaxis
     Route: 048
     Dates: start: 20211105, end: 20211105
  17. LANSOPRAZOLE [Concomitant]
     Active Substance: LANSOPRAZOLE
     Route: 048
     Dates: start: 20211217, end: 20211217
  18. LANSOPRAZOLE [Concomitant]
     Active Substance: LANSOPRAZOLE
     Route: 048
     Dates: start: 20211126, end: 20211126
  19. LANSOPRAZOLE [Concomitant]
     Active Substance: LANSOPRAZOLE
     Route: 048
     Dates: start: 20220315, end: 20220315
  20. LANSOPRAZOLE [Concomitant]
     Active Substance: LANSOPRAZOLE
     Route: 048
     Dates: start: 20211106
  21. GRANEXA [Concomitant]
     Indication: Prophylaxis
     Route: 048
     Dates: start: 20211106
  22. GRANEXA [Concomitant]
     Route: 048
     Dates: start: 20220127, end: 20220129
  23. LENOGRASTIM [Concomitant]
     Active Substance: LENOGRASTIM
     Indication: Prophylaxis
     Route: 058
     Dates: start: 20211218, end: 20211218
  24. LENOGRASTIM [Concomitant]
     Active Substance: LENOGRASTIM
     Route: 058
     Dates: start: 20220127, end: 20220129
  25. LENOGRASTIM [Concomitant]
     Active Substance: LENOGRASTIM
     Route: 058
     Dates: start: 20220309, end: 20220311
  26. METOCLOPRAMIDE [Concomitant]
     Active Substance: METOCLOPRAMIDE
     Indication: Prophylaxis
     Route: 048
     Dates: start: 20220222, end: 20220222
  27. METOCLOPRAMIDE [Concomitant]
     Active Substance: METOCLOPRAMIDE
     Route: 048
     Dates: start: 20220223, end: 20220223
  28. METOCLOPRAMIDE [Concomitant]
     Active Substance: METOCLOPRAMIDE
     Route: 048
     Dates: start: 20220315, end: 20220315
  29. MEROPENEM [Concomitant]
     Active Substance: MEROPENEM
     Route: 042
     Dates: start: 20220526, end: 20220603
  30. MEROPENEM [Concomitant]
     Active Substance: MEROPENEM
     Route: 042
     Dates: start: 20220414, end: 20220415
  31. MEROPENEM [Concomitant]
     Active Substance: MEROPENEM
     Route: 042
     Dates: start: 20220426, end: 20220426
  32. MEROPENEM [Concomitant]
     Active Substance: MEROPENEM
     Route: 042
     Dates: start: 20220427, end: 20220427
  33. MEROPENEM [Concomitant]
     Active Substance: MEROPENEM
     Route: 042
     Dates: start: 20220428, end: 20220428
  34. MEROPENEM [Concomitant]
     Active Substance: MEROPENEM
     Route: 042
     Dates: start: 20220429, end: 20220502
  35. MEROPENEM [Concomitant]
     Active Substance: MEROPENEM
     Route: 042
     Dates: start: 20220503, end: 20220503
  36. MEROPENEM [Concomitant]
     Active Substance: MEROPENEM
     Route: 042
     Dates: start: 20220504, end: 20220506
  37. MEROPENEM [Concomitant]
     Active Substance: MEROPENEM
     Route: 042
     Dates: start: 20220607, end: 20220607
  38. MEROPENEM [Concomitant]
     Active Substance: MEROPENEM
     Route: 042
     Dates: start: 20220603, end: 20220603
  39. MEROPENEM [Concomitant]
     Active Substance: MEROPENEM
     Route: 042
     Dates: start: 20220601, end: 20220602
  40. MEROPENEM [Concomitant]
     Active Substance: MEROPENEM
     Route: 042
     Dates: start: 20220531, end: 20220531
  41. MEROPENEM [Concomitant]
     Active Substance: MEROPENEM
     Route: 042
     Dates: start: 20220530, end: 20220530
  42. MEROPENEM [Concomitant]
     Active Substance: MEROPENEM
     Route: 042
     Dates: start: 20220528, end: 20220528
  43. AVIBACTAM SODIUM\CEFTAZIDIME [Concomitant]
     Active Substance: AVIBACTAM SODIUM\CEFTAZIDIME
     Indication: Pneumonia
     Route: 042
     Dates: start: 20220603
  44. AVIBACTAM SODIUM\CEFTAZIDIME [Concomitant]
     Active Substance: AVIBACTAM SODIUM\CEFTAZIDIME
     Indication: Pneumonia
  45. KETALAR [Concomitant]
     Active Substance: KETAMINE HYDROCHLORIDE
     Route: 042
     Dates: start: 20220411, end: 20220412
  46. KETALAR [Concomitant]
     Active Substance: KETAMINE HYDROCHLORIDE
     Route: 042
     Dates: start: 20220425, end: 20220425
  47. KETALAR [Concomitant]
     Active Substance: KETAMINE HYDROCHLORIDE
     Route: 042
     Dates: start: 20220426, end: 20220428

REACTIONS (4)
  - Sepsis [Fatal]
  - Cardiac arrest [Not Recovered/Not Resolved]
  - Atrial fibrillation [Recovered/Resolved]
  - Haemoptysis [Recovered/Resolved]

NARRATIVE: CASE EVENT DATE: 20220411
